FAERS Safety Report 6647332-4 (Version None)
Quarter: 2010Q1

REPORT INFORMATION
  Report Type: 
  Country: None (occurrence: None)
  Receive Date: 20100323
  Receipt Date: 20100316
  Transmission Date: 20100710
  Serious: Yes (Other)
  Sender: FDA-Public Use
  Company Number: B0641119A

PATIENT
  Age: 70 Year
  Sex: Male

DRUGS (2)
  1. AVOLVE [Suspect]
     Indication: BENIGN PROSTATIC HYPERPLASIA
     Dosage: .5MG PER DAY
     Route: 048
     Dates: start: 20100223, end: 20100308
  2. AVOLVE [Suspect]
     Dosage: .5MG TWICE PER DAY
     Route: 048
     Dates: start: 20100309

REACTIONS (1)
  - LIVER FUNCTION TEST ABNORMAL [None]
